FAERS Safety Report 6522004-5 (Version None)
Quarter: 2009Q4

REPORT INFORMATION
  Report Type: 
  Country: None (occurrence: None)
  Receive Date: 20091224
  Receipt Date: 20091221
  Transmission Date: 20100525
  Serious: Yes (Death)
  Sender: FDA-Public Use
  Company Number: 2009AC000157

PATIENT
  Age: 74 Year
  Sex: Male

DRUGS (10)
  1. DIGOXIN [Suspect]
     Dosage: 0.125 MG; QD; PO
     Route: 048
     Dates: start: 20060101, end: 20071001
  2. PLAVIX [Concomitant]
  3. FUROSEMIDE [Concomitant]
  4. METOPROLOL TARTRATE [Concomitant]
  5. TOPROL-XL [Concomitant]
  6. MIRTAZAPINE [Concomitant]
  7. ISOSORBIDE [Concomitant]
  8. ZETIA [Concomitant]
  9. PACERONE [Concomitant]
  10. KLOR-CON [Concomitant]

REACTIONS (12)
  - ARTERIOSCLEROSIS CORONARY ARTERY [None]
  - ATRIAL FIBRILLATION [None]
  - BLOOD CHOLESTEROL INCREASED [None]
  - CARDIAC FAILURE CONGESTIVE [None]
  - CARDIOMYOPATHY [None]
  - CHRONIC OBSTRUCTIVE PULMONARY DISEASE [None]
  - CORONARY ARTERY DISEASE [None]
  - ECONOMIC PROBLEM [None]
  - HYPERKALAEMIA [None]
  - HYPERTENSION [None]
  - MULTIPLE INJURIES [None]
  - MYOCARDIAL INFARCTION [None]
